FAERS Safety Report 8514341-X (Version None)
Quarter: 2012Q2

REPORT INFORMATION
  Report Type: 
  Country: None (occurrence: None)
  Receive Date: 20120406
  Receipt Date: 20111207
  Transmission Date: 20120825
  Serious: Yes (Life-Threatening, Hospitalization)
  Sender: FDA-Public Use
  Company Number: US-CYPR-2011-000084

PATIENT
  Sex: Male
  Weight: 115 kg

DRUGS (11)
  1. QUINAPRIL HCL [Concomitant]
  2. PRAVASTATIN [Concomitant]
  3. ASPIRIN [Suspect]
     Indication: CORONARY ARTERY DISEASE
     Dosage: (325 MG QD ORAL), (325 MG QD ORAL)
     Route: 048
     Dates: start: 20110415
  4. ASPIRIN [Suspect]
     Indication: CORONARY ARTERY DISEASE
     Dosage: (325 MG QD ORAL), (325 MG QD ORAL)
     Route: 048
     Dates: start: 20050603, end: 20110118
  5. ISOSORBIDE MONONITRATE [Concomitant]
  6. CARVEDILOL [Concomitant]
  7. CYPHER STENT [Concomitant]
  8. CLOPIDOGREL [Suspect]
     Indication: ANTIPLATELET THERAPY
     Dosage: (75 MG QD ORAL)
     Route: 048
     Dates: start: 20110416, end: 20111127
  9. FEXOFENADINE HCL W/PSEUDOEPHEDRINE HCL [Concomitant]
  10. METFORMIN HYDROCHLORIDE [Concomitant]
  11. VITAMIN D [Concomitant]

REACTIONS (1)
  - CARDIAC ARREST [None]
